FAERS Safety Report 14534591 (Version 1)
Quarter: 2018Q1

REPORT INFORMATION
  Report Type: Spontaneous
  Country: GB (occurrence: GB)
  Receive Date: 20180215
  Receipt Date: 20180215
  Transmission Date: 20180509
  Serious: Yes (Other)
  Sender: FDA-Public Use
  Company Number: GB-BAYER-2018-023101

PATIENT
  Age: 84 Year
  Sex: Female

DRUGS (8)
  1. ATENOLOL. [Suspect]
     Active Substance: ATENOLOL
     Dosage: 100 MG, UNK
  2. CO-CARELDOPA [Suspect]
     Active Substance: CARBIDOPA\LEVODOPA
     Dosage: 12.5 MG, UNK
  3. ACETYLSALICYLIC ACID({=100 MG) [Suspect]
     Active Substance: ASPIRIN
     Dosage: 75 MG, UNK
  4. LISINOPRIL. [Suspect]
     Active Substance: LISINOPRIL
     Dosage: 12.5 MG, UNK
  5. OMEPRAZOLE. [Suspect]
     Active Substance: OMEPRAZOLE
     Dosage: 20 MG, UNK
  6. PRAMIPEXOLE. [Suspect]
     Active Substance: PRAMIPEXOLE
     Dosage: 0.88 MG, UNK
  7. CORACTEN [Suspect]
     Active Substance: NIFEDIPINE
     Dosage: 60 MG, UNK
  8. MIRABEGRON [Suspect]
     Active Substance: MIRABEGRON
     Dosage: 50 MG, UNK

REACTIONS (6)
  - Hyperventilation [Unknown]
  - Accidental overdose [Unknown]
  - Tachycardia [Unknown]
  - Drug dispensed to wrong patient [Unknown]
  - Confusional state [Unknown]
  - Anxiety [Unknown]

NARRATIVE: CASE EVENT DATE: 20171104
